FAERS Safety Report 9671690 (Version 2)
Quarter: 2015Q2

REPORT INFORMATION
  Report Type: Spontaneous
  Country: US (occurrence: US)
  Receive Date: 20131106
  Receipt Date: 20150515
  Transmission Date: 20150821
  Serious: Yes (Hospitalization, Other)
  Sender: FDA-Public Use
  Company Number: PHHY2013US122575

PATIENT
  Age: 14 Month
  Sex: Male

DRUGS (1)
  1. METAXALONE. [Suspect]
     Active Substance: METAXALONE
     Indication: PRODUCT USED FOR UNKNOWN INDICATION
     Dosage: 1600 MG, UNK
     Route: 065

REACTIONS (11)
  - Hypertension [Unknown]
  - Ataxia [Not Recovered/Not Resolved]
  - Mydriasis [Not Recovered/Not Resolved]
  - Tachycardia [Unknown]
  - Overdose [Unknown]
  - Trismus [Unknown]
  - Muscle rigidity [Recovered/Resolved]
  - Somnolence [Not Recovered/Not Resolved]
  - Abnormal behaviour [Unknown]
  - Musculoskeletal stiffness [Unknown]
  - Seizure [Unknown]
